FAERS Safety Report 12095062 (Version 1)
Quarter: 2016Q1

REPORT INFORMATION
  Report Type: Spontaneous
  Country: IT (occurrence: IT)
  Receive Date: 20160219
  Receipt Date: 20160219
  Transmission Date: 20160526
  Serious: No
  Sender: FDA-Public Use
  Company Number: IT-PERNIX THERAPEUTICS-2015PT000296

PATIENT
  Age: 30 Year
  Sex: Male

DRUGS (1)
  1. ISOCEF [Suspect]
     Active Substance: CEFTIBUTEN
     Dosage: TOTAL DAILY DOSE 800 MG, FREQUENCY WAS REPORTED AS TOTAL
     Route: 048
     Dates: start: 20140607, end: 20140608

REACTIONS (1)
  - Blepharitis [Unknown]

NARRATIVE: CASE EVENT DATE: 20140608
